FAERS Safety Report 6575918-4 (Version None)
Quarter: 2010Q1

REPORT INFORMATION
  Report Type: 
  Country: None (occurrence: None)
  Receive Date: 20100209
  Receipt Date: 20100202
  Transmission Date: 20100710
  Serious: Yes (Hospitalization, Other)
  Sender: FDA-Public Use
  Company Number: NO-ROXANE LABORATORIES, INC.-2009-RO-01035RO

PATIENT
  Age: 16 Day
  Sex: Male
  Weight: 4 kg

DRUGS (2)
  1. LAMOTRIGINE [Suspect]
     Indication: DRUG EXPOSURE DURING PREGNANCY
     Route: 064
  2. LAMOTRIGINE [Suspect]
     Indication: DRUG EXPOSURE VIA BREAST MILK
     Route: 063

REACTIONS (8)
  - APNOEA [None]
  - CYANOSIS [None]
  - DEPRESSED LEVEL OF CONSCIOUSNESS [None]
  - PULMONARY VALVE STENOSIS [None]
  - RESPIRATORY DISORDER [None]
  - RESTLESSNESS [None]
  - SINUS TACHYCARDIA [None]
  - TACHYPNOEA [None]
